FAERS Safety Report 6090659-8 (Version None)
Quarter: 2009Q1

REPORT INFORMATION
  Report Type: 
  Country: None (occurrence: None)
  Receive Date: 20090223
  Receipt Date: 20090205
  Transmission Date: 20090719
  Serious: Yes (Other)
  Sender: FDA-Public Use
  Company Number: US-1168595

PATIENT
  Sex: Female

DRUGS (2)
  1. SYSTANE EYE DROPS [Suspect]
     Dosage: OPHTHALMIC
     Route: 047
  2. ZYPREXA [Concomitant]

REACTIONS (1)
  - HEAD INJURY [None]
